FAERS Safety Report 8379995-X (Version None)
Quarter: 2012Q1

REPORT INFORMATION
  Report Type: 
  Country: None (occurrence: None)
  Receive Date: 20120323
  Receipt Date: 20110519
  Transmission Date: 20120608
  Serious: Yes (Hospitalization, Other)
  Sender: FDA-Public Use
  Company Number: 163-21880-11040448

PATIENT
  Age: 71 Year
  Sex: Male
  Weight: 102.5129 kg

DRUGS (7)
  1. NEXIUM [Concomitant]
  2. LASIX [Concomitant]
  3. AVODART [Concomitant]
  4. MS CONTIN [Concomitant]
  5. GLIPIZIDE [Concomitant]
  6. NYSTATIN [Concomitant]
  7. REVLIMID [Suspect]
     Indication: MULTIPLE MYELOMA
     Dosage: 25 MG, DAILY X 21 DAYS, PO
     Route: 048
     Dates: start: 20100701, end: 20110301

REACTIONS (1)
  - MULTIPLE MYELOMA [None]
